FAERS Safety Report 5909123-9 (Version None)
Quarter: 2008Q3

REPORT INFORMATION
  Report Type: 
  Country: None (occurrence: None)
  Receive Date: 20080929
  Receipt Date: 20080918
  Transmission Date: 20090109
  Serious: Yes (Other)
  Sender: FDA-Public Use
  Company Number: CHPA2008US16054

PATIENT
  Age: 62 Year
  Sex: Female

DRUGS (5)
  1. GAS-X EXTSTR CHEW TABS PEPPERMINT CREME (NCH) (SIMETHICONE) CHEWABLE T [Suspect]
     Indication: FLATULENCE
     Dosage: 250 MG, QD, ORAL
     Route: 048
     Dates: start: 20080901, end: 20080901
  2. COUMADIN [Concomitant]
  3. ANTIHYPERTENSIVES (NO INGREDIENT/SUBSTANCES) [Concomitant]
  4. THYROID THERAPY (NO INGREDIENTS/SUBSTANCES) [Concomitant]
  5. CORTISONE (CORTISONE) [Concomitant]

REACTIONS (2)
  - DRUG LEVEL INCREASED [None]
  - FLATULENCE [None]
